FAERS Safety Report 18762926 (Version 4)
Quarter: 2021Q1

REPORT INFORMATION
  Report Type: Report from Study
  Country: DK (occurrence: DK)
  Receive Date: 20210120
  Receipt Date: 20210331
  Transmission Date: 20210419
  Serious: Yes (Hospitalization)
  Sender: FDA-Public Use
  Company Number: DK-TAKEDA-2021TUS002248

PATIENT
  Age: 64 Year
  Sex: Female
  Weight: 83 kg

DRUGS (18)
  1. PANTOPRAZOL STADA [Concomitant]
  2. ELTROXIN [Concomitant]
     Active Substance: LEVOTHYROXINE
  3. SUMATRIPTAN. [Concomitant]
     Active Substance: SUMATRIPTAN
  4. MAGNESIA [MAGNESIUM OXIDE] [Concomitant]
  5. LANSOPRAZOL [Concomitant]
     Active Substance: LANSOPRAZOLE
  6. GAVISCON [ALGELDRATE;SODIUM ALGINATE] [Concomitant]
     Active Substance: ALGELDRATE\SODIUM ALGINATE
  7. PARATHYROID HORMONE [Suspect]
     Active Substance: PARATHYROID HORMONE
     Indication: PRODUCT USED FOR UNKNOWN INDICATION
     Route: 065
  8. PARATHYROID HORMONE [Suspect]
     Active Substance: PARATHYROID HORMONE
     Indication: PRODUCT USED FOR UNKNOWN INDICATION
     Route: 065
  9. DYMISTA [Concomitant]
     Active Substance: AZELASTINE HYDROCHLORIDE\FLUTICASONE PROPIONATE
  10. PARACETAMOL [Concomitant]
     Active Substance: ACETAMINOPHEN
  11. VAGIFEM [Concomitant]
     Active Substance: ESTRADIOL
  12. PARATHYROID HORMONE [Suspect]
     Active Substance: PARATHYROID HORMONE
     Indication: PRODUCT USED FOR UNKNOWN INDICATION
     Route: 065
  13. PANTOPRAZOLE TEVA [Concomitant]
     Active Substance: PANTOPRAZOLE SODIUM
  14. UNIKALK SILVER [Concomitant]
  15. XYZAL [Concomitant]
     Active Substance: LEVOCETIRIZINE DIHYDROCHLORIDE
  16. GANGIDEN [Concomitant]
  17. FORSTEO [Concomitant]
     Active Substance: TERIPARATIDE
  18. ALFACALCIDOL ALTERNOVA [Concomitant]

REACTIONS (2)
  - Chest pain [Recovered/Resolved]
  - Facet joint syndrome [Unknown]

NARRATIVE: CASE EVENT DATE: 20200529
